FAERS Safety Report 12329701 (Version 1)
Quarter: 2016Q2

REPORT INFORMATION
  Report Type: Report from Study
  Country: US (occurrence: US)
  Receive Date: 20160503
  Receipt Date: 20160503
  Transmission Date: 20160815
  Serious: Yes (Other)
  Sender: FDA-Public Use
  Company Number: US-ASTRAZENECA-2016SE44905

PATIENT
  Age: 68 Year
  Sex: Female

DRUGS (4)
  1. AZD2281 [Suspect]
     Active Substance: OLAPARIB
     Indication: FALLOPIAN TUBE CANCER
     Dosage: 100 MG BID
     Route: 048
     Dates: end: 20160422
  2. AZD5363 [Suspect]
     Active Substance: INVESTIGATIONAL PRODUCT
     Indication: FALLOPIAN TUBE CANCER
     Dosage: 320 MG BID 4 DAYS ON/3 DAYS OFF
     Route: 048
     Dates: end: 20160422
  3. AZD5363 [Suspect]
     Active Substance: INVESTIGATIONAL PRODUCT
     Indication: ENDOMETRIAL CANCER RECURRENT
     Dosage: 320 MG BID 4 DAYS ON/3 DAYS OFF
     Route: 048
     Dates: end: 20160422
  4. AZD2281 [Suspect]
     Active Substance: OLAPARIB
     Indication: ENDOMETRIAL CANCER RECURRENT
     Dosage: 100 MG BID
     Route: 048
     Dates: end: 20160422

REACTIONS (1)
  - Transient ischaemic attack [Unknown]

NARRATIVE: CASE EVENT DATE: 20160421
